FAERS Safety Report 9028869 (Version 1)
Quarter: 2013Q1

REPORT INFORMATION
  Report Type: Spontaneous
  Country: US (occurrence: US)
  Receive Date: 20130124
  Receipt Date: 20130124
  Transmission Date: 20140127
  Serious: No
  Sender: FDA-Public Use
  Company Number: US-JNJFOC-20130106814

PATIENT
  Age: 63 Year
  Sex: Female
  Weight: 61.24 kg

DRUGS (3)
  1. DURAGESIC [Suspect]
     Indication: PAIN
     Route: 062
  2. GABAPENTIN [Concomitant]
     Indication: PAIN
     Route: 048
  3. DOXEPIN [Concomitant]
     Indication: RESTLESSNESS
     Route: 048

REACTIONS (4)
  - Back pain [Not Recovered/Not Resolved]
  - Incorrect drug administration duration [Not Recovered/Not Resolved]
  - Unevaluable event [Unknown]
  - Drug ineffective [Unknown]
